FAERS Safety Report 8905200 (Version 3)
Quarter: 2012Q4

REPORT INFORMATION
  Report Type: 
  Country: US (occurrence: US)
  Receive Date: 20121109
  Receipt Date: 20121213
  Transmission Date: 20130627
  Serious: Yes (Hospitalization)
  Sender: FDA-Public Use
  Company Number: US-GILEAD-2012-0064383

PATIENT
  Sex: Male

DRUGS (3)
  1. LETAIRIS [Suspect]
     Indication: PULMONARY ARTERIAL HYPERTENSION
     Dosage: 10 mg, QD
     Route: 048
     Dates: start: 20101025
  2. LETAIRIS [Suspect]
     Indication: THALASSAEMIA
  3. REVATIO [Concomitant]

REACTIONS (5)
  - Septic shock [Unknown]
  - Hypotension [Unknown]
  - Heart rate increased [Unknown]
  - Pyrexia [Unknown]
  - Syncope [Unknown]
